FAERS Safety Report 18818840 (Version 2)
Quarter: 2021Q1

REPORT INFORMATION
  Report Type: Spontaneous
  Country: US (occurrence: US)
  Receive Date: 20210202
  Receipt Date: 20210331
  Transmission Date: 20210419
  Serious: No
  Sender: FDA-Public Use
  Company Number: US-ASTRAZENECA-2021A011152

PATIENT
  Sex: Male

DRUGS (4)
  1. HUMALOG [Concomitant]
     Active Substance: INSULIN LISPRO
  2. TOUJEO MAX SOLO STAR [Concomitant]
  3. BYDUREON [Suspect]
     Active Substance: EXENATIDE
     Indication: WEIGHT DECREASED
     Route: 058
     Dates: start: 2019
  4. BYDUREON [Suspect]
     Active Substance: EXENATIDE
     Indication: DECREASED APPETITE
     Route: 058
     Dates: start: 2019

REACTIONS (5)
  - Wrong technique in device usage process [Unknown]
  - Product dose omission in error [Unknown]
  - Injection site haemorrhage [Unknown]
  - Device issue [Unknown]
  - Nervousness [Unknown]
